FAERS Safety Report 9027766 (Version 1)
Quarter: 2013Q1

REPORT INFORMATION
  Report Type: Spontaneous
  Country: US (occurrence: US)
  Receive Date: 20130124
  Receipt Date: 20130124
  Transmission Date: 20140127
  Serious: No
  Sender: FDA-Public Use
  Company Number: US-009507513-1301USA003487

PATIENT
  Age: 30 Year
  Sex: Female
  Weight: 112.47 kg

DRUGS (1)
  1. IMPLANON [Suspect]
     Indication: CONTRACEPTION
     Dosage: 1 DF, UNK RIGHT ARM
     Route: 059
     Dates: start: 20091020

REACTIONS (12)
  - Neck deformity [Unknown]
  - Feeling abnormal [Unknown]
  - Fatigue [Unknown]
  - Vaginal infection [Unknown]
  - Mood altered [Unknown]
  - Depressed mood [Unknown]
  - Weight loss poor [Unknown]
  - Weight increased [Unknown]
  - Polymenorrhoea [Unknown]
  - Oligomenorrhoea [Unknown]
  - Metrorrhagia [Unknown]
  - Incorrect drug administration duration [Unknown]
